FAERS Safety Report 8519916-X (Version None)
Quarter: 2012Q3

REPORT INFORMATION
  Report Type: 
  Country: None (occurrence: None)
  Receive Date: 20120719
  Receipt Date: 20120713
  Transmission Date: 20120928
  Serious: No
  Sender: FDA-Public Use
  Company Number: US-BIOGENIDEC-2012BI025393

PATIENT
  Age: 63 Year
  Sex: Female

DRUGS (4)
  1. AVONEX [Suspect]
     Indication: MULTIPLE SCLEROSIS
     Route: 030
  2. AVONEX [Suspect]
     Route: 030
     Dates: start: 20021101, end: 20021101
  3. AVONEX [Suspect]
     Route: 030
     Dates: start: 20120629
  4. AVONEX [Suspect]
     Route: 030
     Dates: start: 20021130

REACTIONS (1)
  - INJECTION SITE HAEMORRHAGE [None]
